FAERS Safety Report 5826919-2 (Version None)
Quarter: 2008Q3

REPORT INFORMATION
  Report Type: 
  Country: None (occurrence: None)
  Receive Date: 20080730
  Receipt Date: 20080721
  Transmission Date: 20090109
  Serious: Yes (Other)
  Sender: FDA-Public Use
  Company Number: IE-JNJFOC-20080705259

PATIENT
  Sex: Female

DRUGS (2)
  1. SPORANOX [Suspect]
     Indication: ONYCHOMYCOSIS
     Route: 065
  2. CIPRAMIL [Concomitant]
     Route: 065

REACTIONS (1)
  - DEPRESSION [None]
